FAERS Safety Report 18079872 (Version 3)
Quarter: 2020Q3

REPORT INFORMATION
  Report Type: Spontaneous
  Country: US (occurrence: US)
  Receive Date: 20200728
  Receipt Date: 20200811
  Transmission Date: 20201103
  Serious: Yes (Other)
  Sender: FDA-Public Use
  Company Number: US-PFIZER INC-2020284883

PATIENT
  Age: 52 Year
  Sex: Female
  Weight: 90.2 kg

DRUGS (7)
  1. TYVASO [Suspect]
     Active Substance: TREPROSTINIL
     Dosage: UNK
     Route: 055
  2. TYVASO [Suspect]
     Active Substance: TREPROSTINIL
     Dosage: UNK [18 UG, UNK, INHALATION]
  3. REVATIO [Suspect]
     Active Substance: SILDENAFIL CITRATE
     Dosage: UNK
  4. TYVASO [Suspect]
     Active Substance: TREPROSTINIL
     Indication: PULMONARY ARTERIAL HYPERTENSION
     Dosage: UNK (INHALATION)
     Dates: start: 20110920
  5. TYVASO [Suspect]
     Active Substance: TREPROSTINIL
     Dosage: 54 UG, 4X/DAY (54 ?G, QID, INHALATION)
  6. LETAIRIS [Suspect]
     Active Substance: AMBRISENTAN
     Dosage: 10 MG
  7. TYVASO [Suspect]
     Active Substance: TREPROSTINIL
     Dosage: UNK, 4X/DAY (18?54 ?G, QID, INHALATION)

REACTIONS (7)
  - Throat irritation [Unknown]
  - Bronchospasm [Unknown]
  - Drug hypersensitivity [Unknown]
  - Infection [Unknown]
  - Malaise [Unknown]
  - Feeling hot [Unknown]
  - Respiratory tract congestion [Unknown]

NARRATIVE: CASE EVENT DATE: 20200719
